FAERS Safety Report 5126526-3 (Version None)
Quarter: 2006Q4

REPORT INFORMATION
  Report Type: 
  Country: None (occurrence: None)
  Receive Date: 20061010
  Receipt Date: 20060925
  Transmission Date: 20070319
  Serious: Yes (Death, Hospitalization)
  Sender: FDA-Public Use
  Company Number: 2006CT000749

PATIENT
  Age: 50 Year
  Sex: Female
  Weight: 65.7716 kg

DRUGS (13)
  1. VENTAVIS [Suspect]
     Indication: PULMONARY HYPERTENSION
     Dosage: 5 UG; 6TO9X/DAY;INH
     Route: 055
     Dates: start: 20060803, end: 20060911
  2. LASIX [Concomitant]
  3. SPIRONOLACTONE [Concomitant]
  4. DIGOXIN [Concomitant]
  5. RANITIDINE [Concomitant]
  6. TYLENOL [Concomitant]
  7. ZAROXOLYN [Concomitant]
  8. SILDENAFIL [Concomitant]
  9. ZOLOFT [Concomitant]
  10. FOSAMAX [Concomitant]
  11. POTASSIUM CHLORIDE [Concomitant]
  12. PRENATAL VITAMINS [Concomitant]
  13. DIPHENOXYLATE [Concomitant]

REACTIONS (3)
  - CARDIAC ARREST [None]
  - PULMONARY EMBOLISM [None]
  - PULMONARY THROMBOSIS [None]
